FAERS Safety Report 10098294 (Version 3)
Quarter: 2014Q2

REPORT INFORMATION
  Report Type: Report from Study
  Country: CA (occurrence: CA)
  Receive Date: 20140423
  Receipt Date: 20140428
  Transmission Date: 20141212
  Serious: Yes (Other)
  Sender: FDA-Public Use
  Company Number: CA-ROCHE-1244026

PATIENT
  Age: 73 Year
  Sex: Male

DRUGS (16)
  1. RITUXAN [Suspect]
     Indication: RHEUMATOID ARTHRITIS
     Route: 042
     Dates: start: 20100415, end: 20130710
  2. MIRTAZAPINE [Suspect]
     Indication: PRODUCT USED FOR UNKNOWN INDICATION
     Route: 065
     Dates: end: 2013
  3. BACLOFEN [Suspect]
     Indication: PRODUCT USED FOR UNKNOWN INDICATION
     Route: 065
     Dates: end: 2013
  4. TYLENOL [Concomitant]
     Indication: PREMEDICATION
     Route: 048
     Dates: start: 20100415, end: 20130710
  5. BENADRYL (CANADA) [Concomitant]
     Indication: PREMEDICATION
     Route: 048
     Dates: start: 20100415, end: 20130710
  6. SOLU-MEDROL [Concomitant]
     Indication: PREMEDICATION
     Route: 042
     Dates: start: 20100415, end: 20130710
  7. AMLODIPINE [Concomitant]
  8. PREDNISONE [Concomitant]
  9. METFORMIN [Concomitant]
  10. SIMVASTATIN [Concomitant]
  11. NITRO PATCH [Concomitant]
  12. NITRO SPRAY [Concomitant]
  13. VALIUM [Concomitant]
  14. GLIBENCLAMIDE [Concomitant]
  15. PERINDOPRIL [Concomitant]
  16. DIAZEPAM [Concomitant]

REACTIONS (6)
  - Interstitial lung disease [Unknown]
  - Injection site extravasation [Unknown]
  - Drug ineffective [Unknown]
  - Fatigue [Not Recovered/Not Resolved]
  - Pain [Not Recovered/Not Resolved]
  - Drug ineffective [Unknown]
